FAERS Safety Report 20627794 (Version 1)
Quarter: 2022Q1

REPORT INFORMATION
  Report Type: Spontaneous
  Country: US (occurrence: US)
  Receive Date: 20220323
  Receipt Date: 20220323
  Transmission Date: 20220423
  Serious: No
  Sender: FDA-Public Use
  Company Number: US-GW PHARMA-202203USGW01376

PATIENT
  Sex: Male
  Weight: 125.62 kg

DRUGS (1)
  1. EPIDIOLEX [Suspect]
     Active Substance: CANNABIDIOL
     Indication: Seizure
     Dosage: 15.92 MG/KG/DAY, 1000 MILLIGRAM, BID
     Route: 048
     Dates: start: 202101

REACTIONS (1)
  - Weight decreased [Unknown]
